FAERS Safety Report 6285226-7 (Version None)
Quarter: 2009Q3

REPORT INFORMATION
  Report Type: 
  Country: None (occurrence: None)
  Receive Date: 20090727
  Receipt Date: 20090724
  Transmission Date: 20100115
  Serious: Yes (Other)
  Sender: FDA-Public Use
  Company Number: US-RB-018347-09

PATIENT
  Age: 31 Year
  Sex: Male

DRUGS (4)
  1. SUBOXONE [Suspect]
     Route: 060
     Dates: start: 20070101
  2. WELLBUTRIN [Concomitant]
     Indication: DEPRESSION
     Route: 065
  3. ABILIFY [Concomitant]
     Indication: DEPRESSION
     Route: 065
  4. AMBIEN [Concomitant]
     Indication: INSOMNIA
     Dosage: DOSAGE UNKNOWN
     Route: 065

REACTIONS (2)
  - CONVULSION [None]
  - DENTAL CARIES [None]
